FAERS Safety Report 25048568 (Version 1)
Quarter: 2025Q1

REPORT INFORMATION
  Report Type: Spontaneous
  Country: DE (occurrence: DE)
  Receive Date: 20250307
  Receipt Date: 20250307
  Transmission Date: 20250408
  Serious: Yes (Hospitalization)
  Sender: ABBVIE
  Company Number: None

PATIENT
  Age: 46 Year
  Weight: 73 kg

DRUGS (1)
  1. ESCITALOPRAM [Suspect]
     Active Substance: ESCITALOPRAM OXALATE
     Indication: Depression
     Route: 048

REACTIONS (3)
  - Intermenstrual bleeding [Recovering/Resolving]
  - Cardiovascular disorder [Recovering/Resolving]
  - Haemoglobin decreased [Recovering/Resolving]
